FAERS Safety Report 6328135-7 (Version None)
Quarter: 2009Q3

REPORT INFORMATION
  Report Type: 
  Country: None (occurrence: None)
  Receive Date: 20090825
  Receipt Date: 20090126
  Transmission Date: 20100115
  Serious: No
  Sender: FDA-Public Use
  Company Number: US-ABBOTT-09P-163-0499903-00

PATIENT
  Sex: Female
  Weight: 86.26 kg

DRUGS (8)
  1. SYNTHROID [Suspect]
     Indication: THYROIDECTOMY
     Dates: start: 20080905, end: 20081103
  2. SYNTHROID [Suspect]
     Indication: NEOPLASM MALIGNANT
     Dates: start: 20081104, end: 20081216
  3. SYNTHROID [Suspect]
     Dates: start: 20081217
  4. TOPROL-XL [Concomitant]
     Indication: HYPERTENSION
  5. PREVACID [Concomitant]
     Indication: GASTROOESOPHAGEAL REFLUX DISEASE
  6. TRIAMTERENE AND HYDROCHLOROTHIAZIDE [Concomitant]
     Indication: HYPERTENSION
  7. NORVASC [Concomitant]
     Indication: HYPERTENSION
  8. PRAVACHOL [Concomitant]
     Indication: BLOOD CHOLESTEROL ABNORMAL

REACTIONS (2)
  - ALOPECIA [None]
  - PRURITUS [None]
